FAERS Safety Report 17992434 (Version 3)
Quarter: 2020Q4

REPORT INFORMATION
  Report Type: Report from Study
  Country: PA (occurrence: PA)
  Receive Date: 20200707
  Receipt Date: 20201128
  Transmission Date: 20210113
  Serious: Yes (Other)
  Sender: FDA-Public Use
  Company Number: PHHY2019PA183679

PATIENT
  Age: 20 Year
  Sex: Female

DRUGS (3)
  1. GILENYA [Suspect]
     Active Substance: FINGOLIMOD HYDROCHLORIDE
     Indication: MULTIPLE SCLEROSIS
     Dosage: 0.5 MG, UNK
     Route: 065
  2. GILENYA [Suspect]
     Active Substance: FINGOLIMOD HYDROCHLORIDE
     Dosage: 0.5 MG
     Route: 048
     Dates: start: 20190804
  3. GILENYA [Suspect]
     Active Substance: FINGOLIMOD HYDROCHLORIDE
     Dosage: 0.5 MG, QD
     Route: 048
     Dates: start: 20190805, end: 20201020

REACTIONS (29)
  - Facial pain [Unknown]
  - Headache [Not Recovered/Not Resolved]
  - Insomnia [Unknown]
  - Vomiting [Unknown]
  - Emotional disorder [Unknown]
  - Influenza [Unknown]
  - Migraine [Unknown]
  - Anger [Unknown]
  - Fatigue [Unknown]
  - Tremor [Not Recovered/Not Resolved]
  - Nausea [Not Recovered/Not Resolved]
  - Eyelid pain [Unknown]
  - Malaise [Unknown]
  - Paraesthesia [Unknown]
  - Back pain [Unknown]
  - Productive cough [Unknown]
  - Hypoaesthesia oral [Recovered/Resolved with Sequelae]
  - Asthenia [Not Recovered/Not Resolved]
  - Pain in extremity [Unknown]
  - Nasal congestion [Unknown]
  - Hypoaesthesia [Unknown]
  - Pyrexia [Recovered/Resolved]
  - Dysuria [Unknown]
  - Mental disorder [Unknown]
  - Cough [Unknown]
  - Eye pain [Not Recovered/Not Resolved]
  - Eating disorder [Unknown]
  - Platelet count decreased [Unknown]
  - Nasopharyngitis [Unknown]

NARRATIVE: CASE EVENT DATE: 20201019
